FAERS Safety Report 4698032-1 (Version None)
Quarter: 2005Q2

REPORT INFORMATION
  Report Type: 
  Country: None (occurrence: None)
  Receive Date: 20050623
  Receipt Date: 20050614
  Transmission Date: 20051028
  Serious: Yes (Death, Hospitalization)
  Sender: FDA-Public Use
  Company Number: SEWYE743915JUN05

PATIENT
  Sex: Female

DRUGS (7)
  1. ENBREL [Suspect]
     Indication: RHEUMATOID ARTHRITIS
     Dosage: 2 / 1 WEEK
     Route: 058
  2. METHOTREXATE [Suspect]
  3. FOLIC ACID [Concomitant]
  4. PREDNISOLONE [Concomitant]
  5. LEVAXIN [Concomitant]
     Indication: HYPOTHYROIDISM
  6. DIDRONATE [Concomitant]
  7. CALCIUM CARBONATE [Concomitant]

REACTIONS (11)
  - BLOOD UREA INCREASED [None]
  - CHOLANGITIS [None]
  - CHOLELITHIASIS [None]
  - CHOLESTASIS [None]
  - INTERNATIONAL NORMALISED RATIO INCREASED [None]
  - LIVER ABSCESS [None]
  - MULTI-ORGAN FAILURE [None]
  - PLATELET COUNT INCREASED [None]
  - PORTAL VEIN THROMBOSIS [None]
  - SUPRAVENTRICULAR TACHYCARDIA [None]
  - THROMBOCYTOPENIA [None]
